FAERS Safety Report 19720989 (Version 1)
Quarter: 2021Q3

REPORT INFORMATION
  Report Type: Spontaneous
  Country: US (occurrence: US)
  Receive Date: 20210819
  Receipt Date: 20210819
  Transmission Date: 20211014
  Serious: Yes (Disabling)
  Sender: FDA-Public Use
  Company Number: None

PATIENT
  Age: 66 Year
  Sex: Male
  Weight: 75.6 kg

DRUGS (8)
  1. VITAMIN D [Concomitant]
     Active Substance: VITAMIN D NOS
  2. PLAVIX [Concomitant]
     Active Substance: CLOPIDOGREL BISULFATE
  3. AMLODIPINE BESYLATE. [Concomitant]
     Active Substance: AMLODIPINE BESYLATE
  4. DULOXETINE. [Suspect]
     Active Substance: DULOXETINE
     Indication: NEUROPATHY PERIPHERAL
     Dosage: ?          QUANTITY:1 CAPSULE(S);?
     Route: 048
     Dates: start: 20210601, end: 20210818
  5. CLONAZEPAM. [Concomitant]
     Active Substance: CLONAZEPAM
  6. SIMVASTATIN. [Concomitant]
     Active Substance: SIMVASTATIN
  7. LISINOPRIL. [Concomitant]
     Active Substance: LISINOPRIL
  8. SUPER B COMPLEX [Concomitant]
     Active Substance: CYANOCOBALAMIN\DEXPANTHENOL\NIACINAMIDE\PYRIDOXINE HYDROCHLORIDE\RIBOFLAVIN 5^-PHOSPHATE SODIUM\THIAMINE HYDROCHLORIDE\VITAMIN B COMPLEX

REACTIONS (1)
  - Nephrolithiasis [None]

NARRATIVE: CASE EVENT DATE: 20210626
